FAERS Safety Report 13657429 (Version 2)
Quarter: 2017Q2

REPORT INFORMATION
  Report Type: Report from Study
  Country: FR (occurrence: FR)
  Receive Date: 20170615
  Receipt Date: 20170630
  Transmission Date: 20170830
  Serious: Yes (Hospitalization)
  Sender: FDA-Public Use
  Company Number: FR-BRISTOL-MYERS SQUIBB COMPANY-BMS-2017-050079

PATIENT
  Age: 72 Year
  Sex: Male
  Weight: 105 kg

DRUGS (4)
  1. SULFARLEM [Concomitant]
     Active Substance: ANETHOLTRITHION
     Indication: SJOGREN^S SYNDROME
     Dosage: 37.500 MG, UNK
     Route: 048
     Dates: start: 20170228
  2. INNOHEP [Concomitant]
     Active Substance: TINZAPARIN SODIUM
     Indication: PROCEDURAL COMPLICATION
     Dosage: 0.900 ML, QD
     Route: 058
     Dates: start: 20170315
  3. IPILIMUMAB [Suspect]
     Active Substance: IPILIMUMAB
     Indication: MALIGNANT MELANOMA
     Dosage: 315 MG, UNK
     Route: 042
     Dates: start: 20161011
  4. NIVOLUMAB [Suspect]
     Active Substance: NIVOLUMAB
     Indication: MALIGNANT MELANOMA
     Dosage: 105 MG, UNK
     Route: 042
     Dates: start: 20161011

REACTIONS (1)
  - Dry mouth [Not Recovered/Not Resolved]

NARRATIVE: CASE EVENT DATE: 20170530
